FAERS Safety Report 8115104-X (Version None)
Quarter: 2012Q1

REPORT INFORMATION
  Report Type: 
  Country: None (occurrence: None)
  Receive Date: 20120206
  Receipt Date: 20120124
  Transmission Date: 20120608
  Serious: Yes (Hospitalization, Other)
  Sender: FDA-Public Use
  Company Number: FR-PURDUE-GBR-2012-0009614

PATIENT
  Sex: Female

DRUGS (17)
  1. PREDNISONE TAB [Concomitant]
     Dosage: 5 MG, UNK
  2. AMITRIPTYLINE HCL [Suspect]
     Dosage: 40 MG/ML, SEE TEXT
     Route: 048
  3. NITROGLYCERIN [Concomitant]
     Dosage: 0.15 MG, PRN
     Route: 048
     Dates: start: 20070714
  4. TRIVASTAL                          /00397201/ [Concomitant]
     Dosage: 50 MG, UNK
     Dates: start: 20091219
  5. DILTIAZEM HCL [Concomitant]
     Dosage: 1 DF, DAILY
     Route: 048
     Dates: start: 20110429
  6. SPIRIVA [Concomitant]
     Dosage: 18 UNK, AM
     Route: 055
  7. CEFIXIME [Concomitant]
     Dosage: 200 MG, BID
     Route: 048
     Dates: start: 20111115, end: 20111125
  8. OXYCODONE HCL [Suspect]
     Indication: PAIN
     Dosage: 5 MG, SEE TEXT
     Route: 048
     Dates: start: 20111029, end: 20111125
  9. FUROSEMIDE                         /00032602/ [Concomitant]
     Dosage: 20 MG, BID
     Route: 048
     Dates: start: 20100629
  10. OMEPRAZOLE [Concomitant]
     Dosage: 20 MG, DAILY
     Route: 048
     Dates: start: 20081204
  11. ACETAMINOPHEN [Concomitant]
     Dosage: 500 MG, UNK 5 CAPSULES DAILY
     Route: 048
  12. EFFEXOR [Concomitant]
     Dosage: 37.5 MG, DAILY
     Route: 048
     Dates: start: 20100420
  13. LORAZEPAM [Concomitant]
     Dosage: 1 MG, DAILY
     Route: 048
     Dates: start: 20090623
  14. ACETAMINOPHEN W/ CODEINE [Suspect]
     Indication: PAIN
     Dosage: 30 MG, TID
     Route: 048
     Dates: start: 20110930
  15. CALCIUM CARBONATE [Concomitant]
  16. FORLAX                             /00754501/ [Concomitant]
     Dosage: 10 G, UNK
     Route: 048
     Dates: start: 20100511
  17. ASPIRIN [Concomitant]
     Dosage: 75 MG, DAILY
     Route: 048
     Dates: start: 20100420

REACTIONS (5)
  - CONFUSIONAL STATE [None]
  - HYPERNATRAEMIA [None]
  - URINARY RETENTION [None]
  - URINARY TRACT INFECTION [None]
  - SUBILEUS [None]
